FAERS Safety Report 4494346-9 (Version None)
Quarter: 2004Q4

REPORT INFORMATION
  Report Type: 
  Country: None (occurrence: None)
  Receive Date: 20041102
  Receipt Date: 20041014
  Transmission Date: 20050328
  Serious: Yes (Other)
  Sender: FDA-Public Use
  Company Number: DE_040613731

PATIENT
  Age: 61 Year
  Sex: Female

DRUGS (6)
  1. FORTEO [Suspect]
     Indication: OSTEOPOROSIS
     Dosage: 20 UG/ 1 DAY
     Dates: start: 20031101, end: 20040601
  2. SOTALOL HCL [Concomitant]
  3. FENTANYL [Concomitant]
  4. IBUPROFEN [Concomitant]
  5. CALCIMAGON-D3 [Concomitant]
  6. ESOMEPRAZOLE [Concomitant]

REACTIONS (5)
  - DIZZINESS [None]
  - EXOSTOSIS [None]
  - HEADACHE [None]
  - NAUSEA [None]
  - NODAL OSTEOARTHRITIS [None]
